FAERS Safety Report 16244396 (Version 1)
Quarter: 2019Q2

REPORT INFORMATION
  Report Type: Spontaneous
  Country: DE (occurrence: DE)
  Receive Date: 20190426
  Receipt Date: 20190426
  Transmission Date: 20190711
  Serious: Yes (Disabling, Other)
  Sender: FDA-Public Use
  Company Number: DE-MYLANLABS-2019M1038183

PATIENT
  Sex: Male

DRUGS (15)
  1. CELECOXIB. [Suspect]
     Active Substance: CELECOXIB
     Indication: ANKYLOSING SPONDYLITIS
     Dosage: 200 MILLIGRAM, QD,  (IN THE MORNING)
     Route: 065
     Dates: start: 20181105, end: 20181107
  2. TAMSULOSIN HEXAL [Concomitant]
     Active Substance: TAMSULOSIN HYDROCHLORIDE
     Indication: PROSTATITIS
  3. PANTOPRAZOL ABZ PROTECT [Concomitant]
     Active Substance: PANTOPRAZOLE SODIUM
     Indication: ALVEOLITIS
     Dosage: 40 MILLIGRAM
     Route: 065
  4. VOLTAREN RESINAT                   /00372302/ [Concomitant]
     Active Substance: DICLOFENAC SODIUM
     Indication: ANKYLOSING SPONDYLITIS
     Dosage: UNK
  5. VOLTAREN FORTE [Concomitant]
     Active Substance: DICLOFENAC SODIUM
     Indication: ANKYLOSING SPONDYLITIS
     Dosage: 23.2 MILLIGRAM PER GRAM, BID
     Route: 065
  6. VOLTAREN RESINAT                   /00372305/ [Suspect]
     Active Substance: DICLOFENAC
     Indication: PAIN IN EXTREMITY
  7. DILTIAZEM HCL [Concomitant]
     Active Substance: DILTIAZEM HYDROCHLORIDE
     Indication: CROHN^S DISEASE
     Dosage: UNK, AFTER EVERY BOWEL MOVEMENT
     Route: 065
  8. BUDIAIR [Concomitant]
     Active Substance: BUDESONIDE
     Indication: ALVEOLITIS
     Dosage: 200 MICROGRAM
     Route: 065
  9. TAMSULOSIN HEXAL [Concomitant]
     Active Substance: TAMSULOSIN HYDROCHLORIDE
     Indication: PELVIC PAIN
     Dosage: 0.4 MILLIGRAM
     Route: 065
     Dates: start: 2018
  10. BALNEUM HERMAL F                   /00710601/ [Concomitant]
     Indication: DERMATITIS
     Dosage: UNK
     Route: 065
  11. VOLTAREN FORTE [Concomitant]
     Active Substance: DICLOFENAC SODIUM
     Indication: PAIN IN EXTREMITY
  12. CELECOXIB. [Suspect]
     Active Substance: CELECOXIB
     Indication: PAIN IN EXTREMITY
  13. VOLTAREN RESINAT                   /00372305/ [Suspect]
     Active Substance: DICLOFENAC
     Indication: ANKYLOSING SPONDYLITIS
     Dosage: 75 MILLIGRAM, QD,(1-0-1)
     Route: 065
     Dates: start: 201810
  14. BUDENOFALK [Concomitant]
     Active Substance: BUDESONIDE
     Indication: CROHN^S DISEASE
     Dosage: 3 MILLIGRAM, QOD
     Route: 065
  15. PANTOPRAZOL ABZ PROTECT [Concomitant]
     Active Substance: PANTOPRAZOLE SODIUM
     Indication: ANKYLOSING SPONDYLITIS
     Dosage: UNK
     Route: 065

REACTIONS (5)
  - Arthralgia [Unknown]
  - Haematochezia [Unknown]
  - Pyrexia [Recovered/Resolved]
  - Impaired work ability [Unknown]
  - Intestinal haemorrhage [Unknown]

NARRATIVE: CASE EVENT DATE: 20181105
